FAERS Safety Report 4362362-3 (Version None)
Quarter: 2004Q2

REPORT INFORMATION
  Report Type: 
  Country: None (occurrence: None)
  Receive Date: 20040521
  Receipt Date: 20040213
  Transmission Date: 20050107
  Serious: Yes (Other)
  Sender: FDA-Public Use
  Company Number: US-MERCK-0402USA01147

PATIENT
  Age: 82 Year
  Sex: Male
  Weight: 59 kg

DRUGS (11)
  1. ALLOPURINOL [Concomitant]
     Route: 065
  2. ASPIRIN [Concomitant]
     Route: 065
  3. LIPITOR [Concomitant]
     Route: 065
  4. CHONDROITIN SULFATE SODIUM AND GLUCOSAMINE HYDROCHLORIDE [Concomitant]
     Route: 065
  5. DALMANE [Concomitant]
     Route: 065
  6. LASIX [Suspect]
     Route: 065
     Dates: start: 20040101
  7. INDOMETHACIN [Concomitant]
     Route: 065
  8. LISINOPRIL [Suspect]
     Route: 048
     Dates: start: 20040101
  9. COZAAR [Suspect]
     Indication: ANGIOPATHY
     Route: 048
     Dates: start: 20031218
  10. METOPROLOL [Concomitant]
     Route: 065
  11. ACCUPRIL [Suspect]
     Route: 065
     Dates: start: 20040101

REACTIONS (7)
  - BLOOD CREATININE INCREASED [None]
  - BLOOD UREA INCREASED [None]
  - CARDIAC DISORDER [None]
  - DEHYDRATION [None]
  - DIARRHOEA [None]
  - IRON DEFICIENCY ANAEMIA [None]
  - PRURITUS GENERALISED [None]
